FAERS Safety Report 6481161-X (Version None)
Quarter: 2009Q4

REPORT INFORMATION
  Report Type: 
  Country: None (occurrence: None)
  Receive Date: 20091208
  Receipt Date: 20091130
  Transmission Date: 20100525
  Serious: Yes (Hospitalization)
  Sender: FDA-Public Use
  Company Number: US-ASTRAZENECA-2009SE29444

PATIENT
  Age: 71 Year
  Sex: Female
  Weight: 61.3 kg

DRUGS (8)
  1. PRILOSEC [Suspect]
     Route: 048
  2. DOUBLE-BLINDED STUDY DRUG [Concomitant]
     Route: 048
     Dates: start: 20091006, end: 20091030
  3. DOUBLE-BLINDED STUDY DRUG [Concomitant]
     Route: 048
     Dates: start: 20091113
  4. WHOLE BRAIN RADIATION THERAPY [Concomitant]
     Dosage: FOUR TIMES A DAY, FIVE DAYS A WEEK, FOR A THREE WEEK PERIOD
     Dates: start: 20091006, end: 20091022
  5. ATIVAN [Concomitant]
     Route: 048
  6. DARVOCET [Concomitant]
     Indication: PAIN
     Route: 048
  7. DARVOCET [Concomitant]
     Route: 048
  8. DECADRON [Concomitant]

REACTIONS (3)
  - DEHYDRATION [None]
  - FATIGUE [None]
  - WEIGHT DECREASED [None]
